FAERS Safety Report 6773386-0 (Version None)
Quarter: 2010Q2

REPORT INFORMATION
  Report Type: 
  Country: None (occurrence: None)
  Receive Date: 20100611
  Receipt Date: 20100602
  Transmission Date: 20101027
  Serious: Yes (Hospitalization, Other)
  Sender: FDA-Public Use
  Company Number: 2010US001533

PATIENT
  Sex: Female

DRUGS (17)
  1. PROGRAF [Suspect]
     Indication: RENAL TRANSPLANT
     Dosage: 5 MG, BID, ORAL
     Route: 048
  2. MYFORTIC [Concomitant]
  3. PAROXETINE HCL [Concomitant]
  4. VITAMIN D NOS (VITAMIN D NOS) [Concomitant]
  5. NIFEDIPINE [Concomitant]
  6. CALCIUM (CALCIUM) [Concomitant]
  7. MESALAMINE [Concomitant]
  8. CLONIDINE [Concomitant]
  9. ATENOLOL [Concomitant]
  10. OMEPRAZOLE [Concomitant]
  11. LORATADIN (LORATADINE) [Concomitant]
  12. ROPINIROLE [Concomitant]
  13. ALLOPURINOL [Concomitant]
  14. FUROSEMIDE [Concomitant]
  15. EPLERENONE (EPLERENONE) [Concomitant]
  16. METOLAZONE [Concomitant]
  17. METOCLOPRAMIDE [Concomitant]

REACTIONS (3)
  - DIVERTICULAR PERFORATION [None]
  - DIVERTICULITIS [None]
  - WEANING FAILURE [None]
